FAERS Safety Report 21838176 (Version 8)
Quarter: 2023Q1

REPORT INFORMATION
  Report Type: Spontaneous
  Country: US (occurrence: US)
  Receive Date: 20230109
  Receipt Date: 20230227
  Transmission Date: 20230418
  Serious: Yes (Hospitalization, Disabling, Other)
  Sender: FDA-Public Use
  Company Number: US-009507513-2009USA004335

PATIENT
  Sex: Male
  Weight: 81.633 kg

DRUGS (3)
  1. SINGULAIR [Suspect]
     Active Substance: MONTELUKAST SODIUM
     Dosage: CHEW 5 MG BY MOUTH NIGHTLY
     Route: 048
     Dates: start: 201012, end: 201208
  2. SINGULAIR [Suspect]
     Active Substance: MONTELUKAST SODIUM
     Dosage: CHEW 5 MG BY MOUTH NIGHTLY
     Route: 048
     Dates: end: 20160816
  3. MONTELUKAST [Suspect]
     Active Substance: MONTELUKAST SODIUM
     Dosage: UNK
     Dates: start: 2012

REACTIONS (22)
  - Neuropsychiatric symptoms [Recovering/Resolving]
  - Major depression [Unknown]
  - Obsessive-compulsive disorder [Unknown]
  - Intrusive thoughts [Unknown]
  - Egocentrism [Unknown]
  - Haematochezia [Unknown]
  - Affect lability [Unknown]
  - Homicidal ideation [Unknown]
  - Anxiety disorder [Recovering/Resolving]
  - Suicidal ideation [Recovered/Resolved]
  - Dyskinesia [Unknown]
  - Irritable bowel syndrome [Unknown]
  - Panic attack [Unknown]
  - Sleep terror [Unknown]
  - Acne [Unknown]
  - Limb injury [Recovering/Resolving]
  - Ligament sprain [Unknown]
  - Injury [Unknown]
  - Drug hypersensitivity [Unknown]
  - Diarrhoea [Unknown]
  - Headache [Unknown]
  - Abdominal pain [Unknown]

NARRATIVE: CASE EVENT DATE: 20120101
